FAERS Safety Report 6217768-4 (Version None)
Quarter: 2009Q2

REPORT INFORMATION
  Report Type: 
  Country: None (occurrence: None)
  Receive Date: 20090604
  Receipt Date: 20090604
  Transmission Date: 20091009
  Serious: No
  Sender: FDA-Public Use
  Company Number: None

PATIENT
  Age: 37 Year
  Sex: Male
  Weight: 97.5234 kg

DRUGS (1)
  1. CLARITHROMYCIN [Suspect]
     Dosage: 1 TABLET TWICE DAILY PO
     Route: 048
     Dates: start: 20090531, end: 20090602

REACTIONS (4)
  - CONFUSIONAL STATE [None]
  - DYSPNOEA [None]
  - HEART RATE INCREASED [None]
  - PANIC ATTACK [None]
